FAERS Safety Report 18777852 (Version 2)
Quarter: 2021Q2

REPORT INFORMATION
  Report Type: Spontaneous
  Country: US (occurrence: US)
  Receive Date: 20210122
  Receipt Date: 20210423
  Transmission Date: 20210717
  Serious: No
  Sender: FDA-Public Use
  Company Number: 2020SGN04011

PATIENT
  Sex: Female

DRUGS (1)
  1. TUKYSA [Suspect]
     Active Substance: TUCATINIB
     Indication: BREAST CANCER FEMALE
     Dosage: UNK
     Route: 048

REACTIONS (9)
  - Liver function test abnormal [Unknown]
  - Decreased appetite [Unknown]
  - Somnolence [Unknown]
  - Unevaluable event [Unknown]
  - Nausea [Unknown]
  - Liver disorder [Recovering/Resolving]
  - Product dose omission issue [Unknown]
  - Memory impairment [Unknown]
  - Tumour marker abnormal [Unknown]
